FAERS Safety Report 19062190 (Version 2)
Quarter: 2021Q2

REPORT INFORMATION
  Report Type: Report from Study
  Country: US (occurrence: US)
  Receive Date: 20210326
  Receipt Date: 20210518
  Transmission Date: 20210717
  Serious: Yes (Hospitalization, Other)
  Sender: FDA-Public Use
  Company Number: US-PFIZER INC-2021242505

PATIENT
  Age: 65 Year
  Sex: Female
  Weight: 88.44 kg

DRUGS (13)
  1. TOZINAMERAN. [Suspect]
     Active Substance: TOZINAMERAN
     Indication: COVID-19 IMMUNISATION
     Dosage: 1ST DOSE, SINGLE
     Route: 030
     Dates: start: 202101, end: 202101
  2. HUMIRA [Suspect]
     Active Substance: ADALIMUMAB
     Indication: RHEUMATOID ARTHRITIS
     Dosage: 40 MG (40 MG,1 IN 2? 2)
     Route: 058
     Dates: start: 2015, end: 2020
  3. HUMIRA [Suspect]
     Active Substance: ADALIMUMAB
     Indication: LUPUS-LIKE SYNDROME
     Dosage: 40 MG (40 MG,1 IN 2? 2)
     Route: 058
     Dates: start: 2020
  4. ELIQUIS [Concomitant]
     Active Substance: APIXABAN
     Indication: THROMBOSIS
     Dosage: UNK
  5. PROLIN [PROLINE] [Concomitant]
     Dosage: UNK
  6. TRAMADOL. [Concomitant]
     Active Substance: TRAMADOL
     Indication: PAIN
     Dosage: UNK
  7. METHOTREXATE SODIUM. [Suspect]
     Active Substance: METHOTREXATE SODIUM
     Dosage: UNK
  8. LISINOPRIL. [Concomitant]
     Active Substance: LISINOPRIL
     Indication: BLOOD PRESSURE ABNORMAL
     Dosage: UNK
  9. ZETIA [Concomitant]
     Active Substance: EZETIMIBE
     Indication: BLOOD CHOLESTEROL
     Dosage: UNK
  10. NEXIUM [Concomitant]
     Active Substance: ESOMEPRAZOLE MAGNESIUM
     Indication: HIATUS HERNIA
     Dosage: UNK
  11. PREDNISONE. [Concomitant]
     Active Substance: PREDNISONE
     Dosage: UNK
  12. FOLIC ACID. [Concomitant]
     Active Substance: FOLIC ACID
     Indication: RHEUMATOID ARTHRITIS
     Dosage: UNK
  13. VITAMIN D [COLECALCIFEROL] [Concomitant]
     Active Substance: CHOLECALCIFEROL
     Dosage: UNK

REACTIONS (9)
  - Thyroid neoplasm [Not Recovered/Not Resolved]
  - Fatigue [Recovered/Resolved]
  - Dyspnoea [Not Recovered/Not Resolved]
  - Post procedural complication [Unknown]
  - Lung disorder [Not Recovered/Not Resolved]
  - Tremor [Not Recovered/Not Resolved]
  - Cough [Not Recovered/Not Resolved]
  - Depressed mood [Unknown]
  - Thrombosis [Not Recovered/Not Resolved]

NARRATIVE: CASE EVENT DATE: 2016
